FAERS Safety Report 12062757 (Version 1)
Quarter: 2016Q1

REPORT INFORMATION
  Report Type: Spontaneous
  Country: US (occurrence: US)
  Receive Date: 20160210
  Receipt Date: 20160210
  Transmission Date: 20160526
  Serious: Yes (Hospitalization, Other)
  Sender: FDA-Public Use
  Company Number: US-PFIZER INC-2016063093

PATIENT
  Age: 50 Year
  Sex: Male
  Weight: 100 kg

DRUGS (2)
  1. BENEFIX [Suspect]
     Active Substance: COAGULATION FACTOR IX RECOMBINANT HUMAN\ISOPROPYL ALCOHOL
     Indication: FACTOR XI DEFICIENCY
     Dosage: 8-10UNITS DAILY
     Route: 042
  2. BENEFIX [Suspect]
     Active Substance: COAGULATION FACTOR IX RECOMBINANT HUMAN\ISOPROPYL ALCOHOL
     Dosage: 1 DF, ALTERNATE DAY
     Route: 042

REACTIONS (5)
  - Hypoaesthesia [Not Recovered/Not Resolved]
  - Nerve injury [Unknown]
  - Tendon injury [Not Recovered/Not Resolved]
  - Brain neoplasm [Not Recovered/Not Resolved]
  - Laceration [Recovered/Resolved with Sequelae]

NARRATIVE: CASE EVENT DATE: 201310
